FAERS Safety Report 10108304 (Version 1)
Quarter: 2014Q2

REPORT INFORMATION
  Report Type: Spontaneous
  Country: US (occurrence: US)
  Receive Date: 20140425
  Receipt Date: 20140425
  Transmission Date: 20141212
  Serious: Yes (Hospitalization)
  Sender: FDA-Public Use
  Company Number: US-ROCHE-1388479

PATIENT
  Age: 41 Year
  Sex: Male

DRUGS (3)
  1. XOLAIR [Suspect]
     Indication: ASTHMA
     Route: 058
     Dates: start: 2013
  2. DULERA [Concomitant]
     Route: 065
     Dates: start: 2013
  3. SINGULAIR [Concomitant]
     Route: 065
     Dates: start: 2013

REACTIONS (14)
  - Asthma [Recovered/Resolved]
  - Dyspnoea [Recovered/Resolved]
  - Nail discolouration [Recovered/Resolved]
  - Chest pain [Recovered/Resolved]
  - Chest discomfort [Recovered/Resolved]
  - Mood swings [Recovered/Resolved]
  - Middle insomnia [Recovered/Resolved]
  - Wheezing [Recovered/Resolved]
  - Agitation [Recovered/Resolved]
  - Restlessness [Recovered/Resolved]
  - Claustrophobia [Recovered/Resolved]
  - Headache [Recovered/Resolved]
  - Dizziness [Recovered/Resolved]
  - Hyperventilation [Recovered/Resolved]
